FAERS Safety Report 21386273 (Version 1)
Quarter: 2022Q3

REPORT INFORMATION
  Report Type: Other
  Country: US (occurrence: US)
  Receive Date: 20220928
  Receipt Date: 20220928
  Transmission Date: 20221026
  Serious: No
  Sender: FDA-Public Use
  Company Number: US-Covis Pharma GmbH-2022COV21807

PATIENT
  Age: 34 Year
  Sex: Female
  Weight: 60.836 kg

DRUGS (1)
  1. MAKENA [Suspect]
     Active Substance: HYDROXYPROGESTERONE CAPROATE
     Indication: Premature delivery
     Route: 058
     Dates: start: 20220902

REACTIONS (5)
  - Injection site erythema [Unknown]
  - Injection site swelling [Not Recovered/Not Resolved]
  - Injection site pain [Unknown]
  - Injection site nodule [Unknown]
  - Product administration error [Unknown]

NARRATIVE: CASE EVENT DATE: 20220902
